FAERS Safety Report 9629328 (Version 1)
Quarter: 2013Q4

REPORT INFORMATION
  Report Type: Spontaneous
  Country: US (occurrence: US)
  Receive Date: 20131017
  Receipt Date: 20131017
  Transmission Date: 20140711
  Serious: No
  Sender: FDA-Public Use
  Company Number: US-ASTRAZENECA-2013SE68235

PATIENT
  Age: 76 Year
  Sex: Female
  Weight: 65.8 kg

DRUGS (5)
  1. CRESTOR [Suspect]
     Indication: BLOOD CHOLESTEROL INCREASED
     Route: 048
     Dates: end: 2013
  2. ATENOLOL [Suspect]
     Indication: HYPERTENSION
     Route: 048
  3. VITAMIN A [Concomitant]
     Indication: VITAMIN A DEFICIENCY
  4. VITAMIN E [Concomitant]
     Indication: DRY SKIN PROPHYLAXIS
     Dosage: DAILY
  5. OMEGA 3 [Concomitant]
     Indication: CARDIOVASCULAR EVENT PROPHYLAXIS

REACTIONS (3)
  - Blood triglycerides increased [Unknown]
  - Blood cholesterol increased [Unknown]
  - Drug dose omission [Unknown]
